FAERS Safety Report 16233712 (Version 2)
Quarter: 2019Q3

REPORT INFORMATION
  Report Type: Spontaneous
  Country: US (occurrence: US)
  Receive Date: 20190424
  Receipt Date: 20190814
  Transmission Date: 20191004
  Serious: No
  Sender: FDA-Public Use
  Company Number: US-TEVA-2019-US-1037595

PATIENT
  Age: 72 Year
  Sex: Male

DRUGS (2)
  1. LORAZEPAM. [Suspect]
     Active Substance: LORAZEPAM
     Indication: ANXIETY
     Dosage: 1 DOSAGE FORMS DAILY; HALF OF THE TABLET IN MORNING AND HALF IN THE EVENING
     Dates: start: 201904
  2. LORAZEPAM. [Suspect]
     Active Substance: LORAZEPAM
     Indication: PANIC ATTACK
     Route: 065
     Dates: start: 201808

REACTIONS (6)
  - Abdominal discomfort [Unknown]
  - Product physical consistency issue [Unknown]
  - Abdominal pain [Unknown]
  - Insomnia [Unknown]
  - Drug ineffective [Unknown]
  - Flatulence [Unknown]

NARRATIVE: CASE EVENT DATE: 201904
